FAERS Safety Report 15458594 (Version 1)
Quarter: 2018Q4

REPORT INFORMATION
  Report Type: Report from Study
  Country: US (occurrence: US)
  Receive Date: 20181003
  Receipt Date: 20181003
  Transmission Date: 20190204
  Serious: No
  Sender: FDA-Public Use
  Company Number: PHHY2018US115219

PATIENT
  Age: 44 Year
  Sex: Female

DRUGS (1)
  1. COSENTYX [Suspect]
     Active Substance: SECUKINUMAB
     Indication: PSORIASIS
     Route: 058

REACTIONS (7)
  - Skin exfoliation [Unknown]
  - Dry skin [Unknown]
  - Tonsillar erythema [Unknown]
  - Pharyngeal erythema [Unknown]
  - Dysphagia [Unknown]
  - Pharyngeal oedema [Unknown]
  - Tonsillar inflammation [Unknown]

NARRATIVE: CASE EVENT DATE: 20180704
